FAERS Safety Report 7184019-6 (Version None)
Quarter: 2010Q4

REPORT INFORMATION
  Report Type: 
  Country: None (occurrence: None)
  Receive Date: 20101222
  Receipt Date: 20101209
  Transmission Date: 20110411
  Serious: Yes (Hospitalization, Other)
  Sender: FDA-Public Use
  Company Number: JP-CELGENEUS-087-21880-10110109

PATIENT
  Age: 79 Year
  Sex: Male

DRUGS (4)
  1. REVLIMID [Suspect]
     Indication: MULTIPLE MYELOMA
     Route: 048
     Dates: start: 20101015, end: 20101101
  2. LENADEX [Suspect]
     Indication: MULTIPLE MYELOMA
     Route: 048
     Dates: start: 20101015, end: 20101018
  3. LENADEX [Suspect]
     Route: 048
     Dates: start: 20101023, end: 20101026
  4. LENADEX [Suspect]
     Route: 048
     Dates: start: 20101031, end: 20101101

REACTIONS (6)
  - DIABETES MELLITUS [None]
  - HEPATIC FUNCTION ABNORMAL [None]
  - HYPOKALAEMIA [None]
  - HYPONATRAEMIA [None]
  - ORAL CANDIDIASIS [None]
  - PNEUMONIA ASPIRATION [None]
